FAERS Safety Report 4309030-1 (Version None)
Quarter: 2004Q1

REPORT INFORMATION
  Report Type: 
  Country: None (occurrence: None)
  Receive Date: 20040301
  Receipt Date: 20040202
  Transmission Date: 20041129
  Serious: Yes (Other)
  Sender: FDA-Public Use
  Company Number: 2004-DE-00928GL

PATIENT
  Age: 65 Year
  Sex: Female

DRUGS (1)
  1. TELMISARTAN [Suspect]

REACTIONS (2)
  - FAECAL OCCULT BLOOD POSITIVE [None]
  - IRON DEFICIENCY ANAEMIA [None]
